FAERS Safety Report 13496709 (Version 1)
Quarter: 2017Q2

REPORT INFORMATION
  Report Type: Spontaneous
  Country: SG (occurrence: SG)
  Receive Date: 20170428
  Receipt Date: 20170428
  Transmission Date: 20170830
  Serious: Yes (Hospitalization, Other)
  Sender: FDA-Public Use
  Company Number: SG-IPCA LABORATORIES LIMITED-IPC-2017-SG-000102

PATIENT
  Age: 37 Year
  Sex: Female

DRUGS (4)
  1. HYDROXYCHLOROQUINE [Suspect]
     Active Substance: HYDROXYCHLOROQUINE
     Indication: PRODUCT USED FOR UNKNOWN INDICATION
     Dosage: UNK
  2. LOW-MOLECULAR WEIGHT HEPARIN [Concomitant]
     Active Substance: UNSPECIFIED INGREDIENT
     Indication: PRODUCT USED FOR UNKNOWN INDICATION
     Dosage: 1 MG/KG/DAY
  3. ASPIRIN. [Concomitant]
     Active Substance: ASPIRIN
     Indication: PRODUCT USED FOR UNKNOWN INDICATION
  4. PREDNISOLONE. [Concomitant]
     Active Substance: PREDNISOLONE
     Indication: PRODUCT USED FOR UNKNOWN INDICATION

REACTIONS (8)
  - Exposure during pregnancy [Unknown]
  - Thrombocytopenia [Recovering/Resolving]
  - HELLP syndrome [Recovering/Resolving]
  - Sepsis [Recovering/Resolving]
  - Deep vein thrombosis [Recovering/Resolving]
  - Abdominal pain [Recovering/Resolving]
  - Thunderclap headache [Recovering/Resolving]
  - Foetal growth restriction [Recovering/Resolving]
